FAERS Safety Report 17067869 (Version 1)
Quarter: 2019Q4

REPORT INFORMATION
  Report Type: Spontaneous
  Country: US (occurrence: US)
  Receive Date: 20191122
  Receipt Date: 20191122
  Transmission Date: 20200122
  Serious: Yes (Death, Hospitalization, Other)
  Sender: FDA-Public Use
  Company Number: NVSC2019US013650

PATIENT
  Sex: Male

DRUGS (31)
  1. CYCLOBENZAPRINE. [Concomitant]
     Active Substance: CYCLOBENZAPRINE
     Indication: PRODUCT USED FOR UNKNOWN INDICATION
     Dosage: 10 MG
     Route: 065
  2. CIALIS [Concomitant]
     Active Substance: TADALAFIL
     Indication: PRODUCT USED FOR UNKNOWN INDICATION
     Dosage: 10 MG
     Route: 065
  3. GABAPENTIN. [Suspect]
     Active Substance: GABAPENTIN
     Indication: RENAL TUBULAR NECROSIS
     Route: 065
  4. MULTI-VIT [Concomitant]
     Active Substance: VITAMINS
     Indication: PRODUCT USED FOR UNKNOWN INDICATION
     Route: 065
  5. METHOTREXATE. [Concomitant]
     Active Substance: METHOTREXATE
     Indication: PRODUCT USED FOR UNKNOWN INDICATION
     Dosage: 2.5 MG/ML
     Route: 065
  6. CLOPIDOGREL [Concomitant]
     Active Substance: CLOPIDOGREL BISULFATE
     Indication: PRODUCT USED FOR UNKNOWN INDICATION
     Route: 065
  7. LISINOPRIL. [Concomitant]
     Active Substance: LISINOPRIL
     Indication: PRODUCT USED FOR UNKNOWN INDICATION
     Route: 065
  8. AVANDIA [Concomitant]
     Active Substance: ROSIGLITAZONE MALEATE
     Indication: PRODUCT USED FOR UNKNOWN INDICATION
     Dosage: 4 MG
     Route: 065
  9. MIRABEGRON [Concomitant]
     Active Substance: MIRABEGRON
     Indication: PRODUCT USED FOR UNKNOWN INDICATION
     Dosage: 50 MG
     Route: 065
  10. PREDNISONE. [Concomitant]
     Active Substance: PREDNISONE
     Indication: PRODUCT USED FOR UNKNOWN INDICATION
     Dosage: 10 MG
     Route: 065
  11. ACETAMINOPHEN W/HYDROCODONE [Concomitant]
     Active Substance: ACETAMINOPHEN\HYDROCODONE
     Indication: PRODUCT USED FOR UNKNOWN INDICATION
     Route: 065
  12. HYDROXYCHLOROQUINE [Concomitant]
     Active Substance: HYDROXYCHLOROQUINE
     Indication: PRODUCT USED FOR UNKNOWN INDICATION
     Route: 065
  13. JAKAFI [Suspect]
     Active Substance: RUXOLITINIB
     Dosage: 20 MG, BID
     Route: 048
     Dates: start: 2012, end: 20190911
  14. EPOGEN [Concomitant]
     Active Substance: ERYTHROPOIETIN
     Indication: PRODUCT USED FOR UNKNOWN INDICATION
     Route: 065
  15. NORCO [Concomitant]
     Active Substance: ACETAMINOPHEN\HYDROCODONE BITARTRATE
     Indication: PRODUCT USED FOR UNKNOWN INDICATION
     Dosage: 325 MG (5MG-325MG )
     Route: 065
  16. TESTOSTERONE CYPIONATE. [Concomitant]
     Active Substance: TESTOSTERONE CYPIONATE
     Indication: PRODUCT USED FOR UNKNOWN INDICATION
     Dosage: 300 MG/ML
     Route: 065
  17. VITAMIN C [Concomitant]
     Active Substance: ASCORBIC ACID
     Indication: PRODUCT USED FOR UNKNOWN INDICATION
     Route: 065
  18. PROAIR HFA [Concomitant]
     Active Substance: ALBUTEROL SULFATE
     Indication: PRODUCT USED FOR UNKNOWN INDICATION
     Route: 065
  19. MYRBETRIQ [Concomitant]
     Active Substance: MIRABEGRON
     Indication: PRODUCT USED FOR UNKNOWN INDICATION
     Route: 065
  20. SYMBICORT [Concomitant]
     Active Substance: BUDESONIDE\FORMOTEROL FUMARATE DIHYDRATE
     Indication: PRODUCT USED FOR UNKNOWN INDICATION
     Dosage: UNK, BID
     Route: 065
  21. SPIRIVA [Concomitant]
     Active Substance: TIOTROPIUM BROMIDE MONOHYDRATE
     Indication: PRODUCT USED FOR UNKNOWN INDICATION
     Dosage: 18 UG
     Route: 065
  22. FLUOROURACIL. [Concomitant]
     Active Substance: FLUOROURACIL
     Indication: PRODUCT USED FOR UNKNOWN INDICATION
     Route: 065
  23. ASPIRIN. [Concomitant]
     Active Substance: ASPIRIN
     Indication: PRODUCT USED FOR UNKNOWN INDICATION
     Dosage: 81 MG
     Route: 065
  24. JAKAFI [Suspect]
     Active Substance: RUXOLITINIB
     Indication: POLYCYTHAEMIA VERA
     Dosage: 20 MG, BID
     Route: 048
     Dates: start: 201111
  25. OMEPRAZOLE. [Concomitant]
     Active Substance: OMEPRAZOLE
     Indication: PRODUCT USED FOR UNKNOWN INDICATION
     Dosage: 40 MG
     Route: 065
  26. ALBUTEROL SULFATE. [Concomitant]
     Active Substance: ALBUTEROL SULFATE
     Indication: PRODUCT USED FOR UNKNOWN INDICATION
     Dosage: 90 UG
     Route: 065
  27. DOXYCYCLINE. [Suspect]
     Active Substance: DOXYCYCLINE
     Indication: PRODUCT USED FOR UNKNOWN INDICATION
     Route: 065
  28. ALBUTEROL. [Concomitant]
     Active Substance: ALBUTEROL
     Indication: PRODUCT USED FOR UNKNOWN INDICATION
     Route: 065
  29. TAMSULOSIN [Concomitant]
     Active Substance: TAMSULOSIN
     Indication: PRODUCT USED FOR UNKNOWN INDICATION
     Route: 065
  30. JANUVIA [Concomitant]
     Active Substance: SITAGLIPTIN PHOSPHATE
     Indication: PRODUCT USED FOR UNKNOWN INDICATION
     Route: 065
  31. LEVOFLOXACIN. [Concomitant]
     Active Substance: LEVOFLOXACIN
     Indication: PRODUCT USED FOR UNKNOWN INDICATION
     Route: 065

REACTIONS (41)
  - Rheumatoid arthritis [Unknown]
  - Septic shock [Unknown]
  - Aortic stenosis [Unknown]
  - Essential tremor [Unknown]
  - Emphysema [Unknown]
  - Pulmonary fibrosis [Unknown]
  - Acute kidney injury [Unknown]
  - Essential hypertension [Unknown]
  - Renal cyst [Unknown]
  - Decreased appetite [Unknown]
  - Fatigue [Unknown]
  - Headache [Unknown]
  - Anaemia [Unknown]
  - Benign prostatic hyperplasia [Unknown]
  - Pulmonary mass [Unknown]
  - Epistaxis [Recovered/Resolved]
  - Deep vein thrombosis [Unknown]
  - Chronic kidney disease [Unknown]
  - Marrow hyperplasia [Unknown]
  - Skin lesion [Unknown]
  - Hypothyroidism [Unknown]
  - Thrombocytopenia [Unknown]
  - Pneumonitis [Unknown]
  - Chronic obstructive pulmonary disease [Unknown]
  - Asthenia [Unknown]
  - Acute respiratory failure [Fatal]
  - Pneumonia [Unknown]
  - Post procedural cellulitis [Unknown]
  - Psoriatic arthropathy [Unknown]
  - Cyst [Unknown]
  - Pain in extremity [Unknown]
  - Delirium [Unknown]
  - Renal tubular necrosis [Unknown]
  - Pulmonary oedema [Unknown]
  - Hyperlipidaemia [Unknown]
  - Left ventricular dysfunction [Unknown]
  - Type 2 diabetes mellitus [Unknown]
  - Acute lung injury [Unknown]
  - Urticaria [Unknown]
  - Pleural effusion [Unknown]
  - Bursitis [Unknown]

NARRATIVE: CASE EVENT DATE: 201909
